FAERS Safety Report 23645091 (Version 2)
Quarter: 2024Q1

REPORT INFORMATION
  Report Type: Spontaneous
  Country: BR (occurrence: BR)
  Receive Date: 20240318
  Receipt Date: 20240322
  Transmission Date: 20240410
  Serious: Yes (Other)
  Sender: FDA-Public Use
  Company Number: BR-PFIZER INC-PV202400028729

PATIENT
  Age: 31 Year
  Sex: Female

DRUGS (2)
  1. TALIGLUCERASE ALFA [Suspect]
     Active Substance: TALIGLUCERASE ALFA
     Indication: Gaucher^s disease
     Dosage: 15 BOTTLES EVERY 15 DAYS
     Route: 042
     Dates: start: 20201106, end: 20240215
  2. HYDROCORTISONE [Concomitant]
     Active Substance: HYDROCORTISONE
     Dosage: UNK

REACTIONS (11)
  - Maternal exposure during pregnancy [Unknown]
  - Cyanosis [Unknown]
  - Fatigue [Unknown]
  - Malaise [Unknown]
  - Dyspnoea [Unknown]
  - Pruritus [Unknown]
  - Erythema [Unknown]
  - Stress [Unknown]
  - Hypotension [Unknown]
  - Dry throat [Unknown]
  - Dehydration [Unknown]
